FAERS Safety Report 11938072 (Version 1)
Quarter: 2016Q1

REPORT INFORMATION
  Report Type: Spontaneous
  Country: CA (occurrence: CA)
  Receive Date: 20160122
  Receipt Date: 20160122
  Transmission Date: 20160526
  Serious: Yes (Life-Threatening)
  Sender: FDA-Public Use
  Company Number: CA-TEVA-627363ACC

PATIENT

DRUGS (1)
  1. CARBAMAZEPINE. [Suspect]
     Active Substance: CARBAMAZEPINE
     Indication: SEIZURE
     Dosage: 1200 MILLIGRAM DAILY;
     Route: 048

REACTIONS (3)
  - Suicidal ideation [Recovered/Resolved]
  - Product substitution issue [Recovered/Resolved]
  - Tic [Recovered/Resolved]
